FAERS Safety Report 7340413-1 (Version None)
Quarter: 2011Q1

REPORT INFORMATION
  Report Type: 
  Country: None (occurrence: None)
  Receive Date: 20110228
  Receipt Date: 20110214
  Transmission Date: 20110831
  Serious: Yes (Other)
  Sender: FDA-Public Use
  Company Number: 2011SP006657

PATIENT
  Age: 59 Year
  Sex: Male

DRUGS (1)
  1. INTRON A [Suspect]
     Indication: MALIGNANT MELANOMA
     Dosage: 3 MIU;TIW;SC
     Route: 058
     Dates: start: 20010301

REACTIONS (2)
  - URTICARIA CHRONIC [None]
  - AUTOIMMUNE THYROIDITIS [None]
